FAERS Safety Report 21451325 (Version 4)
Quarter: 2022Q4

REPORT INFORMATION
  Report Type: Spontaneous
  Country: DZ (occurrence: None)
  Receive Date: 20221013
  Receipt Date: 20221226
  Transmission Date: 20230112
  Serious: Yes (Other)
  Sender: FDA-Public Use
  Company Number: DZ-Merck Healthcare KGaA-9356865

PATIENT
  Age: 73 Year
  Sex: Male

DRUGS (5)
  1. GLUCOPHAGE [Suspect]
     Active Substance: METFORMIN HYDROCHLORIDE
     Indication: Type 2 diabetes mellitus
     Dates: start: 2002, end: 200702
  2. GLUCOPHAGE [Suspect]
     Active Substance: METFORMIN HYDROCHLORIDE
  3. COZAAR [Concomitant]
     Active Substance: LOSARTAN POTASSIUM
     Indication: Product used for unknown indication
  4. SUPERSTAT [Concomitant]
     Indication: Product used for unknown indication
  5. INSULIN NOS [Concomitant]
     Active Substance: INSULIN NOS
     Indication: Product used for unknown indication

REACTIONS (5)
  - Hepatic failure [Unknown]
  - Hepatic steatosis [Unknown]
  - Glycosylated haemoglobin increased [Unknown]
  - Hypercholesterolaemia [Unknown]
  - Cholelithiasis [Unknown]

NARRATIVE: CASE EVENT DATE: 20220801
